FAERS Safety Report 15882133 (Version 1)
Quarter: 2019Q1

REPORT INFORMATION
  Report Type: Spontaneous
  Country: US (occurrence: US)
  Receive Date: 20190128
  Receipt Date: 20190128
  Transmission Date: 20190417
  Serious: No
  Sender: FDA-Public Use
  Company Number: US-BAYER-2019-018297

PATIENT
  Sex: Female

DRUGS (2)
  1. STIVARGA [Suspect]
     Active Substance: REGORAFENIB
     Indication: OSTEOSARCOMA
     Dosage: DOSE REDUCED
  2. STIVARGA [Suspect]
     Active Substance: REGORAFENIB
     Indication: OSTEOSARCOMA
     Dosage: UNK

REACTIONS (3)
  - Palmar-plantar erythrodysaesthesia syndrome [Unknown]
  - Off label use [None]
  - Product use in unapproved indication [None]
